FAERS Safety Report 9939293 (Version 1)
Quarter: 2014Q1

REPORT INFORMATION
  Report Type: Spontaneous
  Country: GB (occurrence: GB)
  Receive Date: 20140303
  Receipt Date: 20140303
  Transmission Date: 20141002
  Serious: Yes (Life-Threatening, Hospitalization)
  Sender: FDA-Public Use
  Company Number: GB-MYLANLABS-2014S1003559

PATIENT
  Age: 75 Year
  Sex: Male

DRUGS (8)
  1. LOSARTAN [Suspect]
     Indication: HYPERTENSION
     Route: 048
     Dates: end: 20140131
  2. AMLODIPINE [Concomitant]
  3. ANUSOL /00117301/ [Concomitant]
  4. CITALOPRAM [Concomitant]
  5. LANSOPRAZOLE [Concomitant]
  6. SALBUTAMOL [Concomitant]
  7. SERETIDE [Concomitant]
  8. ZOPICLONE [Concomitant]

REACTIONS (2)
  - Hyperkalaemia [Recovered/Resolved]
  - Loss of consciousness [Unknown]
